FAERS Safety Report 11279803 (Version 1)
Quarter: 2015Q3

REPORT INFORMATION
  Report Type: Spontaneous
  Country: CN (occurrence: CN)
  Receive Date: 20150717
  Receipt Date: 20150717
  Transmission Date: 20151125
  Serious: Yes (Hospitalization)
  Sender: FDA-Public Use
  Company Number: CN-PFIZER INC-2015236765

PATIENT
  Age: 95 Year
  Sex: Male

DRUGS (5)
  1. BETALOC [Concomitant]
     Active Substance: METOPROLOL TARTRATE
     Indication: THERAPEUTIC PROCEDURE
     Dosage: 6.25 MG, 1X/DAY
     Route: 048
     Dates: start: 20131031, end: 20131206
  2. TIENAM [Concomitant]
     Active Substance: CILASTATIN SODIUM\IMIPENEM
     Indication: THERAPEUTIC PROCEDURE
     Dosage: 1 G, 3X/DAY
     Route: 041
     Dates: start: 20131105, end: 20131105
  3. AMIKACIN [Concomitant]
     Active Substance: AMIKACIN
     Indication: THERAPEUTIC PROCEDURE
     Dosage: 0.2 G, 1X/DAY
     Route: 041
     Dates: start: 20131105, end: 20131108
  4. VFEND [Suspect]
     Active Substance: VORICONAZOLE
     Indication: ANTIFUNGAL TREATMENT
     Dosage: 200 MG, 2X/DAY
     Route: 041
     Dates: start: 20131105, end: 20131113
  5. MUCOSOLVAN [Concomitant]
     Active Substance: AMBROXOL\CLENBUTEROL
     Indication: THERAPEUTIC PROCEDURE
     Dosage: 90 MG, 2X/DAY
     Dates: start: 20131031, end: 20131206

REACTIONS (2)
  - Mental disorder [Recovered/Resolved]
  - Dyspnoea [Recovered/Resolved]

NARRATIVE: CASE EVENT DATE: 20131112
